FAERS Safety Report 5865112-4 (Version None)
Quarter: 2008Q3

REPORT INFORMATION
  Report Type: 
  Country: None (occurrence: None)
  Receive Date: 20080829
  Receipt Date: 20080825
  Transmission Date: 20090109
  Serious: Yes (Other)
  Sender: FDA-Public Use
  Company Number: A0744136A

PATIENT
  Age: 25 Year
  Sex: Male

DRUGS (4)
  1. LAMICTAL [Suspect]
     Dosage: 275MG TWICE PER DAY
     Route: 048
     Dates: start: 20050101
  2. VIACTIV [Suspect]
     Indication: VITAMIN D DECREASED
     Route: 048
     Dates: start: 20080301
  3. GLYCOLAX [Concomitant]
  4. BENEFIBER [Concomitant]

REACTIONS (6)
  - COMPLEX PARTIAL SEIZURES [None]
  - DRUG INTERACTION [None]
  - FATIGUE [None]
  - HYPERHIDROSIS [None]
  - PETIT MAL EPILEPSY [None]
  - STARING [None]
